FAERS Safety Report 23736777 (Version 3)
Quarter: 2024Q2

REPORT INFORMATION
  Report Type: Report from Study
  Country: US (occurrence: US)
  Receive Date: 20240412
  Receipt Date: 20240418
  Transmission Date: 20240716
  Serious: Yes (Hospitalization)
  Sender: FDA-Public Use
  Company Number: US-SA-SAC20240410000771

PATIENT
  Age: 39 Year
  Sex: Female

DRUGS (3)
  1. DUPILUMAB [Suspect]
     Active Substance: DUPILUMAB
     Indication: Dermatitis atopic
     Dosage: 200 MG, QOW
     Route: 058
     Dates: start: 20170328, end: 2023
  2. DUPILUMAB [Suspect]
     Active Substance: DUPILUMAB
     Dosage: 300 MG, QOW
     Route: 058
     Dates: end: 2023
  3. DUPILUMAB [Suspect]
     Active Substance: DUPILUMAB
     Indication: Dermatitis atopic
     Dosage: 300 MG
     Route: 058

REACTIONS (22)
  - Dyspnoea [Unknown]
  - Chest pain [Unknown]
  - Musculoskeletal chest pain [Unknown]
  - Injection site mass [Recovered/Resolved]
  - Acne cystic [Unknown]
  - Nodule [Unknown]
  - COVID-19 [Unknown]
  - Chest discomfort [Unknown]
  - Lung disorder [Unknown]
  - Hyperhidrosis [Unknown]
  - Tympanic membrane disorder [Unknown]
  - Joint noise [Unknown]
  - Pyrexia [Unknown]
  - Gastric pH decreased [Unknown]
  - Visual impairment [Unknown]
  - Swelling of eyelid [Unknown]
  - Nasopharyngitis [Unknown]
  - Dizziness [Unknown]
  - Ocular hyperaemia [Unknown]
  - Injection site swelling [Recovered/Resolved]
  - Rash [Unknown]
  - Incorrect dose administered [Unknown]

NARRATIVE: CASE EVENT DATE: 20170101
